FAERS Safety Report 15554305 (Version 4)
Quarter: 2018Q4

REPORT INFORMATION
  Report Type: Spontaneous
  Country: US (occurrence: US)
  Receive Date: 20181026
  Receipt Date: 20181211
  Transmission Date: 20190205
  Serious: No
  Sender: FDA-Public Use
  Company Number: US-PFIZER INC-2018433190

PATIENT
  Age: 71 Year
  Sex: Female

DRUGS (4)
  1. ADVIL [Suspect]
     Active Substance: IBUPROFEN
     Indication: PAIN
     Dosage: 400 MG, DAILY, (2-200 MG A DAY)
     Dates: start: 201809, end: 2018
  2. ADVIL [Suspect]
     Active Substance: IBUPROFEN
     Indication: INTERVERTEBRAL DISC DEGENERATION
  3. ADVIL [Suspect]
     Active Substance: IBUPROFEN
     Indication: BURSITIS
  4. ADVIL [Suspect]
     Active Substance: IBUPROFEN
     Indication: ARTHRALGIA

REACTIONS (2)
  - Malaise [Unknown]
  - Drug ineffective [Unknown]

NARRATIVE: CASE EVENT DATE: 2018
